FAERS Safety Report 5808162-6 (Version None)
Quarter: 2008Q3

REPORT INFORMATION
  Report Type: 
  Country: None (occurrence: None)
  Receive Date: 20080709
  Receipt Date: 20080625
  Transmission Date: 20090109
  Serious: Yes (Disabling, Other)
  Sender: FDA-Public Use
  Company Number: 2008S1011421

PATIENT
  Sex: Male

DRUGS (1)
  1. ISOTRETINOIN [Suspect]

REACTIONS (5)
  - ABDOMINAL PAIN [None]
  - DIARRHOEA [None]
  - FREQUENT BOWEL MOVEMENTS [None]
  - INFLAMMATORY BOWEL DISEASE [None]
  - RECTAL HAEMORRHAGE [None]
